FAERS Safety Report 17504818 (Version 1)
Quarter: 2020Q1

REPORT INFORMATION
  Report Type: Spontaneous
  Country: US (occurrence: US)
  Receive Date: 20200305
  Receipt Date: 20200305
  Transmission Date: 20200409
  Serious: No
  Sender: FDA-Public Use
  Company Number: US-ALEMBIC PHARMACUETICALS LIMITED-2020SCAL000094

PATIENT

DRUGS (3)
  1. OLMESARTAN MEDOXIMIL [Suspect]
     Active Substance: OLMESARTAN MEDOXOMIL
     Indication: HYPERTENSION
     Dosage: 20 MILLIGRAM, OD
     Route: 048
     Dates: start: 201906, end: 201908
  2. OLMESARTAN MEDOXIMIL [Suspect]
     Active Substance: OLMESARTAN MEDOXOMIL
     Dosage: 20 MILLIGRAM, OD
     Route: 048
     Dates: start: 20200118, end: 20200219
  3. IBUPROFEN. [Concomitant]
     Active Substance: IBUPROFEN
     Indication: PRODUCT USED FOR UNKNOWN INDICATION
     Dosage: ONCE IN A WHILE WHEN NEEDED

REACTIONS (1)
  - Alopecia [Not Recovered/Not Resolved]

NARRATIVE: CASE EVENT DATE: 201906
